FAERS Safety Report 6381973-7 (Version None)
Quarter: 2009Q3

REPORT INFORMATION
  Report Type: 
  Country: None (occurrence: None)
  Receive Date: 20090925
  Receipt Date: 20090903
  Transmission Date: 20100115
  Serious: Yes (Other)
  Sender: FDA-Public Use
  Company Number: 8051530

PATIENT
  Age: 38 Year
  Sex: Female
  Weight: 58.97 kg

DRUGS (10)
  1. CIMZIA [Suspect]
     Indication: CROHN'S DISEASE
     Dosage: 400 MG/M SC
     Route: 058
     Dates: start: 20090702, end: 20090724
  2. PRISTIQ [Concomitant]
  3. AMBIEN [Concomitant]
  4. DESINOPRIL [Concomitant]
  5. DEPAKOTE [Concomitant]
  6. CLONAZEPAM [Concomitant]
  7. PHENERGAN [Concomitant]
  8. DARVOCET [Concomitant]
  9. TRAMADOL HCL [Concomitant]
  10. ZANAFLEX [Concomitant]

REACTIONS (2)
  - ANURIA [None]
  - CONTUSION [None]
